FAERS Safety Report 7260081-7 (Version None)
Quarter: 2011Q1

REPORT INFORMATION
  Report Type: 
  Country: None (occurrence: None)
  Receive Date: 20110130
  Receipt Date: 20100903
  Transmission Date: 20110831
  Serious: No
  Sender: FDA-Public Use
  Company Number: US-ABBOTT-10P-163-0669792-00

PATIENT
  Sex: Female
  Weight: 95.34 kg

DRUGS (2)
  1. HUMIRA [Suspect]
     Indication: PSORIASIS
     Dates: start: 20091201, end: 20100801
  2. HUMIRA [Suspect]
     Dates: start: 20100903

REACTIONS (3)
  - STAPHYLOCOCCAL INFECTION [None]
  - NASAL DISCOMFORT [None]
  - RHINORRHOEA [None]
